FAERS Safety Report 10916771 (Version 1)
Quarter: 2015Q1

REPORT INFORMATION
  Report Type: Spontaneous
  Country: US (occurrence: None)
  Receive Date: 20150312
  Receipt Date: 20150312
  Transmission Date: 20150721
  Serious: No
  Sender: FDA-Public Use
  Company Number: None

PATIENT
  Age: 14 Month
  Sex: Male
  Weight: 9.98 kg

DRUGS (1)
  1. CEFDINIR. [Suspect]
     Active Substance: CEFDINIR
     Indication: EAR INFECTION
     Dosage: TAKEN BY MOUTH
     Dates: start: 20150227, end: 20150302

REACTIONS (7)
  - Crying [None]
  - Aggression [None]
  - Screaming [None]
  - Agitation [None]
  - Anger [None]
  - Abnormal behaviour [None]
  - Irritability [None]

NARRATIVE: CASE EVENT DATE: 20150302
